FAERS Safety Report 7906618-3 (Version None)
Quarter: 2011Q4

REPORT INFORMATION
  Report Type: 
  Country: None (occurrence: None)
  Receive Date: 20111110
  Receipt Date: 20111104
  Transmission Date: 20120403
  Serious: Yes (Other)
  Sender: FDA-Public Use
  Company Number: US-B.I. PHARMACEUTICALS,INC./RIDGEFIELD-2011-BP-17818BP

PATIENT
  Sex: Male

DRUGS (9)
  1. LIPITOR [Concomitant]
     Indication: BLOOD CHOLESTEROL
     Dosage: 10 MG
     Route: 048
  2. ASCORBIC ACID [Concomitant]
     Indication: ROUTINE HEALTH MAINTENANCE
     Dosage: 500 MG
     Route: 048
  3. PRADAXA [Suspect]
     Indication: ATRIAL FIBRILLATION
     Dosage: 300 MG
     Route: 048
     Dates: start: 20101101
  4. ASPIRIN [Concomitant]
     Indication: ROUTINE HEALTH MAINTENANCE
     Dosage: 81 MG
     Route: 048
  5. AMLODIPINE [Concomitant]
     Indication: HYPERTENSION
     Route: 048
  6. XALATAN [Concomitant]
     Indication: GLAUCOMA
  7. SPIRONOLACTONE [Concomitant]
     Dates: end: 20110701
  8. SOTALOL [Concomitant]
     Indication: ATRIAL FIBRILLATION
     Route: 048
     Dates: start: 20100914
  9. AMLODIPINE BESYLATE AND BENAZEPRIL HCL [Concomitant]

REACTIONS (4)
  - NON-HODGKIN'S LYMPHOMA [None]
  - WEIGHT DECREASED [None]
  - ABDOMINAL MASS [None]
  - ATRIAL FIBRILLATION [None]
